FAERS Safety Report 8916309 (Version 1)
Quarter: 2012Q4

REPORT INFORMATION
  Report Type: 
  Country: IN (occurrence: IN)
  Receive Date: 20121120
  Receipt Date: 20121120
  Transmission Date: 20130627
  Serious: Yes (Life-Threatening)
  Sender: FDA-Public Use
  Company Number: IN-ROXANE LABORATORIES, INC.-2012-RO-02415RO

PATIENT
  Age: 24 Year
  Sex: Female

DRUGS (1)
  1. AMLODIPINE [Suspect]
     Route: 048

REACTIONS (1)
  - Intentional overdose [Recovered/Resolved]
